FAERS Safety Report 4636429-6 (Version None)
Quarter: 2005Q2

REPORT INFORMATION
  Report Type: 
  Country: None (occurrence: None)
  Receive Date: 20050415
  Receipt Date: 20050405
  Transmission Date: 20051028
  Serious: Yes (Death, Hospitalization)
  Sender: FDA-Public Use
  Company Number: JP-JNJFOC-20041201273

PATIENT
  Age: 64 Year
  Sex: Female

DRUGS (8)
  1. DUROTEP [Suspect]
     Route: 062
  2. DUROTEP [Suspect]
     Route: 062
  3. DUROTEP [Suspect]
     Route: 062
  4. DUROTEP [Suspect]
     Route: 062
  5. DUROTEP [Suspect]
     Dosage: THREE 2.5 MG PATCHES
     Route: 062
  6. DUROTEP [Suspect]
     Indication: CANCER PAIN
     Dosage: ONE HALF PATCH AREA WAS APPLIED
     Route: 062
  7. INCADRONATE DISODIUM [Concomitant]
  8. STEROID [Concomitant]
     Route: 049

REACTIONS (6)
  - DEATH [None]
  - DELIRIUM [None]
  - DRUG TOXICITY [None]
  - HYPERCALCAEMIA [None]
  - SOMNOLENCE [None]
  - TUMOUR ASSOCIATED FEVER [None]
